FAERS Safety Report 7994852-6 (Version None)
Quarter: 2011Q4

REPORT INFORMATION
  Report Type: 
  Country: None (occurrence: None)
  Receive Date: 20111220
  Receipt Date: 20111216
  Transmission Date: 20120403
  Serious: Yes (Other)
  Sender: FDA-Public Use
  Company Number: US-BAYER-2011-078046

PATIENT
  Age: 51 Year
  Sex: Female
  Weight: 68.027 kg

DRUGS (2)
  1. MAGNEVIST [Suspect]
     Indication: NUCLEAR MAGNETIC RESONANCE IMAGING BREAST
     Dosage: 15 ML, ONCE
     Route: 042
     Dates: start: 20110825, end: 20110825
  2. MAGNEVIST [Suspect]
     Indication: BREAST PAIN

REACTIONS (6)
  - HYPERSENSITIVITY [None]
  - OCULAR DISCOMFORT [None]
  - FLUSHING [None]
  - URTICARIA [None]
  - ERYTHEMA [None]
  - PRURITUS [None]
